FAERS Safety Report 9064750 (Version 4)
Quarter: 2013Q1

REPORT INFORMATION
  Report Type: Spontaneous
  Country: CA (occurrence: CA)
  Receive Date: 20130213
  Receipt Date: 20130322
  Transmission Date: 20140127
  Serious: Yes (Other)
  Sender: FDA-Public Use
  Company Number: PHHY2013CA013851

PATIENT
  Sex: Female

DRUGS (4)
  1. GILENYA [Suspect]
     Indication: RELAPSING-REMITTING MULTIPLE SCLEROSIS
     Dosage: 0.5 MG, QD
     Route: 048
     Dates: start: 20120319
  2. SYNTHROID [Concomitant]
     Dosage: 0.1 MG, QD
  3. RASILEZ [Concomitant]
     Dosage: 300 MG, QD
  4. DEPOPROVERA [Concomitant]
     Route: 030

REACTIONS (1)
  - Breast mass [Not Recovered/Not Resolved]
